FAERS Safety Report 10250347 (Version 1)
Quarter: 2014Q2

REPORT INFORMATION
  Report Type: Spontaneous
  Country: US (occurrence: None)
  Receive Date: 20140618
  Receipt Date: 20140618
  Transmission Date: 20141212
  Serious: Yes (Life-Threatening, Hospitalization, Other)
  Sender: FDA-Public Use
  Company Number: NSR_01565_2014

PATIENT
  Age: 62 Year
  Sex: Female
  Weight: 112.04 kg

DRUGS (9)
  1. METOCLOPRAMIDE [Suspect]
     Indication: PREOPERATIVE CARE
     Route: 042
  2. GLYCOPYRROLATE [Suspect]
     Indication: PREOPERATIVE CARE
     Route: 042
  3. LISINOPRIL [Concomitant]
  4. ASPIRIN [Concomitant]
  5. ROSUVASTATIN [Concomitant]
  6. DOCUSATE [Concomitant]
  7. OMEPRAZOLE [Concomitant]
  8. CALCITONIN [Concomitant]
  9. ALENDRONATE [Concomitant]

REACTIONS (14)
  - Dizziness [None]
  - Dyspnoea [None]
  - Oxygen saturation decreased [None]
  - Bradycardia [None]
  - Cardiac arrest [None]
  - Cardio-respiratory arrest [None]
  - Electrocardiogram ST segment depression [None]
  - Tachycardia [None]
  - Hypertension [None]
  - Supraventricular tachycardia [None]
  - Blood magnesium decreased [None]
  - Myocardial infarction [None]
  - Nausea [None]
  - Presyncope [None]
